FAERS Safety Report 15644746 (Version 5)
Quarter: 2019Q1

REPORT INFORMATION
  Report Type: Spontaneous
  Country: DE (occurrence: DE)
  Receive Date: 20181121
  Receipt Date: 20190226
  Transmission Date: 20190417
  Serious: Yes (Death, Hospitalization, Other)
  Sender: FDA-Public Use
  Company Number: DE-GILEAD-2018-0375453

PATIENT
  Sex: Female

DRUGS (2)
  1. ZYDELIG [Suspect]
     Active Substance: IDELALISIB
     Indication: CHRONIC LYMPHOCYTIC LEUKAEMIA RECURRENT
     Route: 065
  2. RITUXIMAB. [Concomitant]
     Active Substance: RITUXIMAB

REACTIONS (2)
  - Disease progression [Fatal]
  - Drug ineffective [Fatal]

NARRATIVE: CASE EVENT DATE: 20181027
